FAERS Safety Report 5787013-2 (Version None)
Quarter: 2008Q2

REPORT INFORMATION
  Report Type: 
  Country: None (occurrence: None)
  Receive Date: 20080623
  Receipt Date: 20080623
  Transmission Date: 20081010
  Serious: No
  Sender: FDA-Public Use
  Company Number: None

PATIENT
  Sex: Female

DRUGS (2)
  1. ULTRAM [Suspect]
     Indication: MUSCULOSKELETAL PAIN
     Dosage: 50 MG BID PO
     Route: 048
  2. ULTRAM [Suspect]
     Indication: OSTEOARTHRITIS
     Dosage: 50 MG BID PO
     Route: 048

REACTIONS (2)
  - DRUG INEFFECTIVE [None]
  - DRUG INTOLERANCE [None]
